FAERS Safety Report 20051968 (Version 1)
Quarter: 2021Q4

REPORT INFORMATION
  Report Type: Spontaneous
  Country: US (occurrence: US)
  Receive Date: 20211110
  Receipt Date: 20211110
  Transmission Date: 20220303
  Serious: Yes (Other)
  Sender: FDA-Public Use
  Company Number: US-GLAXOSMITHKLINE- US2021GSK229770

PATIENT
  Sex: Female

DRUGS (8)
  1. ZANTAC [Suspect]
     Active Substance: RANITIDINE HYDROCHLORIDE
     Indication: Abdominal discomfort
     Dosage: UNK UNK, QD
     Route: 065
     Dates: start: 200801, end: 200912
  2. ZANTAC [Suspect]
     Active Substance: RANITIDINE HYDROCHLORIDE
     Indication: Antacid therapy
  3. ZANTAC [Suspect]
     Active Substance: RANITIDINE HYDROCHLORIDE
     Indication: Abdominal discomfort
     Dosage: UNK UNK, QD
     Route: 065
     Dates: start: 200801, end: 200912
  4. ZANTAC [Suspect]
     Active Substance: RANITIDINE HYDROCHLORIDE
     Indication: Antacid therapy
  5. ZANTAC [Suspect]
     Active Substance: RANITIDINE HYDROCHLORIDE
     Indication: Abdominal discomfort
     Dosage: UNK UNK, QD
     Route: 065
     Dates: start: 200801, end: 200912
  6. ZANTAC [Suspect]
     Active Substance: RANITIDINE HYDROCHLORIDE
     Indication: Antacid therapy
  7. RANITIDINE [Suspect]
     Active Substance: RANITIDINE
     Indication: Abdominal discomfort
     Dosage: UNK UNK, QD
     Route: 065
     Dates: start: 200801, end: 200912
  8. RANITIDINE [Suspect]
     Active Substance: RANITIDINE
     Indication: Antacid therapy

REACTIONS (2)
  - Colorectal cancer [Unknown]
  - Throat cancer [Unknown]
